FAERS Safety Report 4394230-5 (Version None)
Quarter: 2004Q3

REPORT INFORMATION
  Report Type: 
  Country: None (occurrence: None)
  Receive Date: 20040707
  Receipt Date: 20040625
  Transmission Date: 20050211
  Serious: No
  Sender: FDA-Public Use
  Company Number: 04P-163-0253066-00

PATIENT
  Sex: Female

DRUGS (2)
  1. NORVIR [Suspect]
     Route: 064
  2. KALETRA [Suspect]
     Route: 064

REACTIONS (2)
  - ALPHA 1 FOETOPROTEIN ABNORMAL [None]
  - DRUG EXPOSURE DURING PREGNANCY [None]
